FAERS Safety Report 8491422-0 (Version None)
Quarter: 2012Q3

REPORT INFORMATION
  Report Type: 
  Country: None (occurrence: None)
  Receive Date: 20120706
  Receipt Date: 20120625
  Transmission Date: 20120928
  Serious: Yes (Hospitalization)
  Sender: FDA-Public Use
  Company Number: DE-VERTEX PHARMACEUTICALS INC.-000000000000000905

PATIENT
  Sex: Male

DRUGS (3)
  1. TELAPREVIR [Suspect]
     Indication: HEPATITIS C
     Dosage: DOSAGE FORM: TABLET
     Route: 048
     Dates: start: 20111220, end: 20120312
  2. COPEGUS [Concomitant]
     Indication: HEPATITIS C
     Dosage: DOSAGE FORM: TABLET
     Route: 048
     Dates: start: 20111220
  3. PEGINTERFERON ALFA-2A [Concomitant]
     Indication: HEPATITIS C
     Dosage: DOSAGE FORM: INJECTION
     Route: 058
     Dates: start: 20111220

REACTIONS (7)
  - GENERAL PHYSICAL HEALTH DETERIORATION [None]
  - NAUSEA [None]
  - CYSTITIS [None]
  - PNEUMONIA [None]
  - LEUKOPENIA [None]
  - DEHYDRATION [None]
  - BRONCHOPNEUMONIA [None]
